FAERS Safety Report 11122346 (Version 1)
Quarter: 2015Q2

REPORT INFORMATION
  Report Type: Spontaneous
  Country: NL (occurrence: NL)
  Receive Date: 20150519
  Receipt Date: 20150519
  Transmission Date: 20150821
  Serious: Yes (Other)
  Sender: FDA-Public Use
  Company Number: NL-CIPLA LTD.-2015NL03866

PATIENT

DRUGS (7)
  1. RISPERIDONE. [Suspect]
     Active Substance: RISPERIDONE
     Route: 065
  2. FLUPENTIXOL [Suspect]
     Active Substance: FLUPENTIXOL
     Route: 065
  3. HALOPERIDOL. [Suspect]
     Active Substance: HALOPERIDOL
     Route: 065
  4. VALPROIC ACID. [Suspect]
     Active Substance: VALPROIC ACID
     Route: 065
  5. CLOZAPINE. [Suspect]
     Active Substance: CLOZAPINE
     Route: 065
  6. ESCITOLAPRAM [Suspect]
     Active Substance: ESCITALOPRAM OXALATE
     Route: 065
  7. OLANZAPINE. [Suspect]
     Active Substance: OLANZAPINE
     Route: 065

REACTIONS (4)
  - Neutropenia [Unknown]
  - Drug resistance [Unknown]
  - Seizure [Unknown]
  - Mental disability [None]
